FAERS Safety Report 8074343-7 (Version None)
Quarter: 2012Q1

REPORT INFORMATION
  Report Type: 
  Country: None (occurrence: None)
  Receive Date: 20120126
  Receipt Date: 20120123
  Transmission Date: 20120608
  Serious: Yes (Death, Hospitalization)
  Sender: FDA-Public Use
  Company Number: US-GLAXOSMITHKLINE-A0790241A

PATIENT
  Age: 60 Year
  Sex: Female

DRUGS (6)
  1. GLYBURIDE [Concomitant]
  2. AVANDIA [Suspect]
     Indication: TYPE 2 DIABETES MELLITUS
     Dosage: 2MG PER DAY
     Route: 048
     Dates: start: 20050113, end: 20050430
  3. LISINOPRIL [Concomitant]
  4. ATENOLOL [Concomitant]
  5. METFORMIN HCL [Concomitant]
  6. CRESTOR [Concomitant]

REACTIONS (2)
  - MYOCARDIAL INFARCTION [None]
  - DEATH [None]
